FAERS Safety Report 18650918 (Version 3)
Quarter: 2021Q1

REPORT INFORMATION
  Report Type: Report from Study
  Country: None (occurrence: AU)
  Receive Date: 20201223
  Receipt Date: 20210105
  Transmission Date: 20210419
  Serious: Yes (Hospitalization)
  Sender: FDA-Public Use
  Company Number: AU-ABBVIE-20K-008-3701810-00

PATIENT
  Age: 79 Year
  Sex: Female

DRUGS (2)
  1. DUODOPA [Suspect]
     Active Substance: CARBIDOPA\LEVODOPA
  2. DUODOPA [Suspect]
     Active Substance: CARBIDOPA\LEVODOPA
     Indication: PARKINSON^S DISEASE
     Dosage: DUODOPA 100ML GEL CASSETTE
     Route: 050
     Dates: start: 20180908

REACTIONS (8)
  - Paranoia [Unknown]
  - Fall [Recovered/Resolved]
  - Cognitive disorder [Unknown]
  - Delirium [Recovering/Resolving]
  - Behaviour disorder [Recovering/Resolving]
  - Device leakage [Recovered/Resolved]
  - Joint injury [Recovered/Resolved]
  - Joint injury [Unknown]

NARRATIVE: CASE EVENT DATE: 20201231
